FAERS Safety Report 25318054 (Version 1)
Quarter: 2025Q2

REPORT INFORMATION
  Report Type: Spontaneous
  Country: ES (occurrence: ES)
  Receive Date: 20250515
  Receipt Date: 20250515
  Transmission Date: 20250716
  Serious: Yes (Other)
  Sender: ABBVIE
  Company Number: None

PATIENT
  Age: 79 Year
  Sex: Female

DRUGS (11)
  1. ATOGEPANT [Suspect]
     Active Substance: ATOGEPANT
     Indication: Migraine
     Dosage: 60 MG COMPRIMIDOS,  28 COMPRIMIDOS
     Route: 048
     Dates: start: 20250310, end: 20250320
  2. CALCIFEDIOL [Concomitant]
     Active Substance: CALCIFEDIOL
     Indication: Product used for unknown indication
     Dosage: 0,266 MG SOLUCION ORAL , 10 AMPOLLAS BEBIBLES DE 1,5 ML
     Route: 048
  3. TRYPTIZOL [Concomitant]
     Active Substance: AMITRIPTYLINE HYDROCHLORIDE
     Indication: Product used for unknown indication
     Dosage: 25 MG COMPRIMIDOS RECUBIERTOS CON PELICULA, 60 COMPRIMIDOS
     Route: 048
     Dates: start: 20220210
  4. ROSUVASTATIN [Concomitant]
     Active Substance: ROSUVASTATIN
     Indication: Product used for unknown indication
     Dosage: 10 MG COMPRIMIDOS RECUBIERTOS CON PELICULA , 28 COMPRIMIDOS
     Route: 048
     Dates: start: 20190509
  5. PROLIA [Concomitant]
     Active Substance: DENOSUMAB
     Indication: Product used for unknown indication
     Dosage: 60 MG SOLUCION INYECTABLE EN JERINGA PRECARGADA, 1 JERINGA PRECARGADA DE 1 ML
     Route: 048
     Dates: start: 20170421
  6. OMEPRAZOLE [Concomitant]
     Active Substance: OMEPRAZOLE
     Indication: Product used for unknown indication
     Dosage: CINFAMED 20 MG CAPSULAS DURAS GASTRORESISTENTES EFG , 28 C?PSULAS
     Route: 048
     Dates: start: 20201215
  7. MAXALT [Concomitant]
     Active Substance: RIZATRIPTAN BENZOATE
     Indication: Product used for unknown indication
     Dosage: MAX 10 MG  LIOFILIZADO ORAL , 6 LIOFILIZADOS
     Route: 048
     Dates: start: 20230616
  8. ENALAPRIL MALEATE [Concomitant]
     Active Substance: ENALAPRIL MALEATE
     Indication: Product used for unknown indication
     Dosage: 20 MG COMPRIMIDOS , 30 COMPRIMIDOS
     Route: 048
     Dates: start: 20250305
  9. DIAZEPAM [Concomitant]
     Active Substance: DIAZEPAM
     Indication: Product used for unknown indication
     Dosage: PRODES 2,5 MG COMPRIMIDOS, 40 COMPRIMIDOS
     Route: 048
     Dates: start: 20220302
  10. METFORMIN HYDROCHLORIDE [Concomitant]
     Active Substance: METFORMIN HYDROCHLORIDE
     Indication: Product used for unknown indication
     Dosage: CINFA 850 MG COMPRIMIDOS RECUBIERTOS CON PELICULA EFG, 50 COMPRIMIDOS
     Route: 048
     Dates: start: 20180822
  11. CALCIUM CARBONATE [Concomitant]
     Active Substance: CALCIUM CARBONATE
     Indication: Product used for unknown indication
     Dosage: D 600 MG/400 UI COMPRIMIDOS, 60 COMPRIMIDOS
     Route: 048
     Dates: start: 20220223

REACTIONS (5)
  - Presyncope [Recovered/Resolved]
  - Craniocerebral injury [Recovered/Resolved]
  - Nausea [Recovered/Resolved]
  - Dizziness [Recovered/Resolved]
  - Asthenia [Recovered/Resolved]

NARRATIVE: CASE EVENT DATE: 20250321
